FAERS Safety Report 20826025 (Version 5)
Quarter: 2022Q2

REPORT INFORMATION
  Report Type: Spontaneous
  Country: JP (occurrence: JP)
  Receive Date: 20220513
  Receipt Date: 20220628
  Transmission Date: 20220720
  Serious: Yes (Death, Other)
  Sender: FDA-Public Use
  Company Number: JP-BAYER-2022A068221

PATIENT
  Age: 77 Year
  Sex: Male

DRUGS (3)
  1. XOFIGO [Suspect]
     Active Substance: RADIUM RA-223 DICHLORIDE
     Indication: Hormone-refractory prostate cancer
     Dosage: UNK UNK, ONCE
     Dates: start: 20220209, end: 20220209
  2. XOFIGO [Suspect]
     Active Substance: RADIUM RA-223 DICHLORIDE
     Indication: Metastasis
     Dosage: UNK UNK, ONCE
     Dates: start: 20220309, end: 20220309
  3. XOFIGO [Suspect]
     Active Substance: RADIUM RA-223 DICHLORIDE
     Indication: Hormone-refractory prostate cancer
     Dosage: UNK UNK, ONCE
     Dates: start: 20220406, end: 20220406

REACTIONS (3)
  - Cardiac failure [Fatal]
  - Hormone-refractory prostate cancer [None]
  - Pleural effusion [Fatal]

NARRATIVE: CASE EVENT DATE: 20220413
